FAERS Safety Report 7493166-0 (Version None)
Quarter: 2011Q2

REPORT INFORMATION
  Report Type: 
  Country: None (occurrence: None)
  Receive Date: 20110520
  Receipt Date: 20110510
  Transmission Date: 20111010
  Serious: Yes (Hospitalization, Other)
  Sender: FDA-Public Use
  Company Number: NL-AMGEN-NLDSP2011024857

PATIENT
  Age: 78 Year
  Sex: Female
  Weight: 56 kg

DRUGS (2)
  1. PREDNISONE [Concomitant]
     Dosage: 10 MG, 1X/DAY
     Dates: start: 20110201
  2. ENBREL [Suspect]
     Indication: RHEUMATOID ARTHRITIS
     Dosage: 50 MG, WEEKLY
     Dates: start: 20060509, end: 20110421

REACTIONS (1)
  - BRONCHIAL CARCINOMA [None]
